FAERS Safety Report 4712455-3 (Version None)
Quarter: 2005Q3

REPORT INFORMATION
  Report Type: 
  Country: None (occurrence: None)
  Receive Date: 20050711
  Receipt Date: 20050614
  Transmission Date: 20060218
  Serious: Yes (Other)
  Sender: FDA-Public Use
  Company Number: 2005075415

PATIENT
  Age: 64 Year
  Sex: Male
  Weight: 77.1115 kg

DRUGS (6)
  1. VIAGRA [Suspect]
     Indication: ERECTILE DYSFUNCTION
     Dosage: 50 MG AS NECESSARY, ORAL
     Route: 048
     Dates: start: 20040101, end: 20040101
  2. NIACIN [Suspect]
     Indication: ILL-DEFINED DISORDER
     Dates: end: 20050101
  3. COENZYME Q10 [Suspect]
     Indication: ILL-DEFINED DISORDER
     Dates: end: 20050101
  4. ADVIL [Concomitant]
  5. IBUPROFEN [Concomitant]
  6. NAPROXEN SODIUM [Concomitant]

REACTIONS (2)
  - BLINDNESS UNILATERAL [None]
  - VISUAL FIELD DEFECT [None]
